FAERS Safety Report 5592762-5 (Version None)
Quarter: 2008Q1

REPORT INFORMATION
  Report Type: 
  Country: None (occurrence: None)
  Receive Date: 20080116
  Receipt Date: 20080111
  Transmission Date: 20080703
  Serious: Yes (Other)
  Sender: FDA-Public Use
  Company Number: ES-BAYER-200810760GPV

PATIENT
  Age: 70 Year
  Sex: Female

DRUGS (1)
  1. ULTRAVIST 370 [Suspect]
     Indication: ENDOMETRIAL CANCER
     Route: 042
     Dates: start: 20071201, end: 20071201

REACTIONS (2)
  - BRONCHOSPASM [None]
  - LARYNGEAL OEDEMA [None]
